FAERS Safety Report 11802687 (Version 1)
Quarter: 2015Q4

REPORT INFORMATION
  Report Type: Spontaneous
  Country: DK (occurrence: DE)
  Receive Date: 20151204
  Receipt Date: 20151204
  Transmission Date: 20160305
  Serious: Yes (Other)
  Sender: FDA-Public Use
  Company Number: DE-FRI-1000081349

PATIENT
  Age: 1 Day
  Sex: Male
  Weight: 2.44 kg

DRUGS (2)
  1. HAES-STERIL [Concomitant]
     Indication: FOETAL GROWTH RESTRICTION
     Route: 064
  2. ESCITALOPRAM [Suspect]
     Active Substance: ESCITALOPRAM OXALATE
     Indication: DEPRESSION
     Dosage: 10 MG
     Route: 064
     Dates: start: 20140224, end: 20141123

REACTIONS (3)
  - Microcephaly [Unknown]
  - Small for dates baby [Unknown]
  - Foetal exposure during pregnancy [Recovered/Resolved]

NARRATIVE: CASE EVENT DATE: 20141123
